FAERS Safety Report 25442359 (Version 1)
Quarter: 2025Q2

REPORT INFORMATION
  Report Type: Report from Study
  Country: BE (occurrence: BE)
  Receive Date: 20250616
  Receipt Date: 20250616
  Transmission Date: 20250716
  Serious: Yes (Hospitalization)
  Sender: ABBVIE
  Company Number: BE-ABBVIE-6328266

PATIENT
  Age: 57 Year
  Sex: Male

DRUGS (4)
  1. FOSCARBIDOPA\FOSLEVODOPA [Suspect]
     Active Substance: FOSCARBIDOPA\FOSLEVODOPA
     Indication: Parkinson^s disease
     Route: 058
     Dates: start: 20250204
  2. BENSERAZIDE\LEVODOPA [Concomitant]
     Active Substance: BENSERAZIDE\LEVODOPA
     Indication: Parkinson^s disease
  3. QUETIAPINE [Concomitant]
     Active Substance: QUETIAPINE
     Indication: Product used for unknown indication
  4. MIRTAZAPINE [Concomitant]
     Active Substance: MIRTAZAPINE
     Indication: Product used for unknown indication

REACTIONS (6)
  - Poor quality sleep [Unknown]
  - Hallucination [Unknown]
  - Delusion [Unknown]
  - Sexually inappropriate behaviour [Unknown]
  - Intentional product misuse [Unknown]
  - Impulse-control disorder [Unknown]

NARRATIVE: CASE EVENT DATE: 20250101
